FAERS Safety Report 20910655 (Version 1)
Quarter: 2022Q2

REPORT INFORMATION
  Report Type: Spontaneous
  Country: CA (occurrence: None)
  Receive Date: 20220603
  Receipt Date: 20220603
  Transmission Date: 20220720
  Serious: Yes (Hospitalization)
  Sender: FDA-Public Use
  Company Number: CA-ROCHE-3109635

PATIENT
  Age: 41 Year
  Sex: Female

DRUGS (8)
  1. CLONAZEPAM [Suspect]
     Active Substance: CLONAZEPAM
     Indication: Insomnia
     Route: 048
  2. ABILIFY MAINTENA [Suspect]
     Active Substance: ARIPIPRAZOLE
     Indication: Product used for unknown indication
     Route: 065
  3. ABILIFY MAINTENA [Suspect]
     Active Substance: ARIPIPRAZOLE
     Route: 030
  4. ABILIFY MAINTENA [Suspect]
     Active Substance: ARIPIPRAZOLE
     Route: 065
  5. QUETIAPINE [Suspect]
     Active Substance: QUETIAPINE
     Indication: Insomnia
     Route: 048
  6. CYMBALTA [Suspect]
     Active Substance: DULOXETINE HYDROCHLORIDE
     Indication: Insomnia
     Route: 065
  7. CYMBALTA [Suspect]
     Active Substance: DULOXETINE HYDROCHLORIDE
     Route: 065
  8. CYMBALTA [Suspect]
     Active Substance: DULOXETINE HYDROCHLORIDE
     Route: 065

REACTIONS (7)
  - Product use in unapproved indication [Unknown]
  - Abnormal behaviour [Unknown]
  - Mood altered [Unknown]
  - Drug interaction [Unknown]
  - Stubbornness [Unknown]
  - Product use issue [Unknown]
  - Thinking abnormal [Unknown]
